FAERS Safety Report 5847883-6 (Version None)
Quarter: 2008Q3

REPORT INFORMATION
  Report Type: 
  Country: None (occurrence: None)
  Receive Date: 20080814
  Receipt Date: 20080814
  Transmission Date: 20090109
  Serious: Yes (Life-Threatening)
  Sender: FDA-Public Use
  Company Number: None

PATIENT
  Age: 35 Year
  Sex: Female
  Weight: 57.1532 kg

DRUGS (1)
  1. SPIRONOLACTONE [Suspect]
     Indication: ACNE
     Dosage: 2 TABLETS  3X D  PO
     Route: 048
     Dates: start: 19910601, end: 19941201

REACTIONS (17)
  - ACNE [None]
  - ADRENAL NEOPLASM [None]
  - ASTHENIA [None]
  - COGNITIVE DISORDER [None]
  - CONTUSION [None]
  - CONVULSION [None]
  - HAIR COLOUR CHANGES [None]
  - HAIR GROWTH ABNORMAL [None]
  - HEADACHE [None]
  - HYPOAESTHESIA [None]
  - IMMUNE SYSTEM DISORDER [None]
  - NEUROLOGICAL SYMPTOM [None]
  - OFF LABEL USE [None]
  - PARALYSIS [None]
  - SKIN FRAGILITY [None]
  - VARICOSE VEIN [None]
  - WEIGHT INCREASED [None]
